FAERS Safety Report 23927098 (Version 1)
Quarter: 2024Q2

REPORT INFORMATION
  Report Type: Spontaneous
  Country: US (occurrence: US)
  Receive Date: 20240531
  Receipt Date: 20240531
  Transmission Date: 20240717
  Serious: No
  Sender: FDA-Public Use
  Company Number: US-RADIUS HEALTH INC.-2023US006626

PATIENT
  Age: 56 Year
  Sex: Female

DRUGS (1)
  1. TYMLOS [Suspect]
     Active Substance: ABALOPARATIDE
     Indication: Spinal compression fracture
     Dosage: 80 MICROGRAM, QD
     Route: 058
     Dates: start: 20231216

REACTIONS (1)
  - Muscle strain [Recovering/Resolving]

NARRATIVE: CASE EVENT DATE: 20231216
